FAERS Safety Report 8926731 (Version 1)
Quarter: 2012Q4

REPORT INFORMATION
  Report Type: 
  Country: US (occurrence: US)
  Receive Date: 20121127
  Receipt Date: 20121127
  Transmission Date: 20130627
  Serious: No
  Sender: FDA-Public Use
  Company Number: US-PFIZER INC-2012294840

PATIENT
  Sex: Male

DRUGS (4)
  1. VERAPAMIL HCL [Suspect]
     Dosage: UNK
  2. IMITREX [Suspect]
     Dosage: UNK
  3. FIORICET [Suspect]
     Dosage: UNK
  4. DECADRON [Suspect]
     Dosage: UNK

REACTIONS (1)
  - Drug effect decreased [Unknown]
